FAERS Safety Report 17808152 (Version 1)
Quarter: 2020Q2

REPORT INFORMATION
  Report Type: Spontaneous
  Country: US (occurrence: US)
  Receive Date: 20200520
  Receipt Date: 20200520
  Transmission Date: 20200714
  Serious: No
  Sender: FDA-Public Use
  Company Number: US-CIPLA LTD.-2019US06548

PATIENT

DRUGS (2)
  1. TOPIRAMATE. [Suspect]
     Active Substance: TOPIRAMATE
     Dosage: 1 DOSAGE FORM (1 TABLET), BID
     Route: 048
     Dates: end: 201806
  2. TOPIRAMATE. [Suspect]
     Active Substance: TOPIRAMATE
     Indication: WEIGHT DECREASED
     Dosage: 1 DOSAGE FORM (1 TABLET), QD FOR 2 WEEKS
     Route: 048
     Dates: start: 201806

REACTIONS (6)
  - Feeling abnormal [Recovered/Resolved]
  - Off label use [Unknown]
  - Headache [Recovered/Resolved]
  - Disturbance in attention [Recovered/Resolved]
  - Adverse reaction [Recovered/Resolved]
  - Product use in unapproved indication [Unknown]
